FAERS Safety Report 5396666-2 (Version None)
Quarter: 2007Q3

REPORT INFORMATION
  Report Type: 
  Country: None (occurrence: None)
  Receive Date: 20070725
  Receipt Date: 20070716
  Transmission Date: 20080115
  Serious: Yes (Death, Hospitalization)
  Sender: FDA-Public Use
  Company Number: B0480271A

PATIENT
  Age: 17 Year
  Sex: Male

DRUGS (18)
  1. FORTUM [Suspect]
     Dosage: 2G TWICE PER DAY
     Route: 042
     Dates: start: 20070520, end: 20070524
  2. PURINETHOL [Suspect]
     Dosage: 300MG PER DAY
     Route: 048
     Dates: start: 20070423, end: 20070423
  3. ARACYTINE [Suspect]
     Route: 042
     Dates: start: 20070424, end: 20070518
  4. NOVANTRONE [Suspect]
     Dosage: 20MG CYCLIC
     Route: 042
     Dates: start: 20070425, end: 20070429
  5. AMSIDINE [Suspect]
     Dosage: 174MG PER DAY
     Route: 042
     Dates: start: 20070516, end: 20070518
  6. TAZOCILLINE [Suspect]
     Indication: HYPERTHERMIA
     Route: 042
     Dates: start: 20070430, end: 20070520
  7. AMIKLIN [Suspect]
     Indication: HYPERTHERMIA
     Dosage: 1G PER DAY
     Route: 042
     Dates: start: 20070520, end: 20070523
  8. VFEND [Suspect]
     Dosage: 300MG TWICE PER DAY
     Route: 042
     Dates: start: 20070516, end: 20070519
  9. CANCIDAS [Suspect]
     Dosage: 50MG PER DAY
     Route: 042
     Dates: start: 20070519, end: 20070523
  10. FLAGYL [Suspect]
     Dosage: 500U3 THREE TIMES PER DAY
     Route: 042
     Dates: start: 20070511, end: 20070524
  11. TIENAM [Suspect]
     Dosage: 500MG FOUR TIMES PER DAY
     Route: 042
     Dates: start: 20070518, end: 20070520
  12. METHOTREXATE [Suspect]
     Dosage: 15MG PER DAY
     Route: 037
     Dates: start: 20070427, end: 20070506
  13. ARACYTINE [Suspect]
     Dosage: 40MG PER DAY
     Route: 037
     Dates: start: 20070427, end: 20070509
  14. CERUBIDINE [Suspect]
     Dosage: 104MG PER DAY
     Route: 042
     Dates: start: 20070424, end: 20070424
  15. HYDREA [Suspect]
     Dosage: 500MG SIX TIMES PER DAY
     Route: 048
     Dates: start: 20070423, end: 20070425
  16. VANCOMYCIN [Concomitant]
     Indication: HYPERTHERMIA
     Route: 065
     Dates: start: 20070509
  17. FUNGIZONE [Concomitant]
     Indication: HYPERTHERMIA
     Route: 065
     Dates: start: 20070509
  18. TIENAM [Concomitant]
     Route: 065
     Dates: start: 20070509

REACTIONS (17)
  - ARRHYTHMIA [None]
  - BRADYCARDIA [None]
  - BRONCHOPULMONARY ASPERGILLOSIS [None]
  - CARDIO-RESPIRATORY ARREST [None]
  - CEREBELLAR SYNDROME [None]
  - COMA [None]
  - CONFUSIONAL STATE [None]
  - CONVULSION [None]
  - DECEREBRATION [None]
  - EYE MOVEMENT DISORDER [None]
  - HYPERTHERMIA [None]
  - LIVER FUNCTION TEST ABNORMAL [None]
  - LYMPHADENITIS [None]
  - MYDRIASIS [None]
  - SINUS BRADYCARDIA [None]
  - TACHYPNOEA [None]
  - VENTRICULAR FIBRILLATION [None]
